FAERS Safety Report 23577403 (Version 1)
Quarter: 2024Q1

REPORT INFORMATION
  Report Type: Spontaneous
  Country: CA (occurrence: CA)
  Receive Date: 20240228
  Receipt Date: 20240228
  Transmission Date: 20240410
  Serious: Yes (Other)
  Sender: FDA-Public Use
  Company Number: CA-PFIZER INC-PV202300153698

PATIENT
  Age: 57 Year
  Sex: Female

DRUGS (12)
  1. IBRANCE [Suspect]
     Active Substance: PALBOCICLIB
     Indication: Breast cancer metastatic
     Dosage: UNK
     Dates: start: 20210702
  2. IBRANCE [Suspect]
     Active Substance: PALBOCICLIB
     Dosage: 125 MG X 21 DAYS CYCLE REPEATED EVERY 28 DAYS
     Route: 048
  3. FULVESTRANT [Concomitant]
     Active Substance: FULVESTRANT
     Dosage: UNK
  4. SYNTHROID [Concomitant]
     Active Substance: LEVOTHYROXINE SODIUM
     Indication: Thyroid therapy
     Dosage: 0.150 MG, DAILY
     Route: 048
     Dates: start: 20240210
  5. COMIRNATY (RAXTOZINAMERAN) [Concomitant]
     Active Substance: RAXTOZINAMERAN
     Indication: COVID-19 immunisation
     Dosage: DOSE 1, SINGLE
     Dates: start: 20231025, end: 20231025
  6. FLULAVAL TETRA [Concomitant]
     Active Substance: INFLUENZA VIRUS VACCINE
     Indication: Immunisation
     Dosage: DOSE NUMBER UNKNOWN, SINGLE
     Dates: start: 20231025, end: 20231025
  7. LORAZEPAM [Concomitant]
     Active Substance: LORAZEPAM
     Dosage: 1 MG, AS NEEDED
     Route: 060
     Dates: start: 20230901
  8. FAMOTIDINE [Concomitant]
     Active Substance: FAMOTIDINE
     Indication: Prophylaxis
     Dosage: BAT EDTIME, TAKE WHILE TAKING DEXAMETHASONE
     Route: 048
     Dates: start: 20230831
  9. DEXAMETHASONE [Concomitant]
     Active Substance: DEXAMETHASONE
     Indication: Prophylaxis
     Dosage: TWO 4 MG TABLETS FOR 7 DAYS
  10. DEXAMETHASONE [Concomitant]
     Active Substance: DEXAMETHASONE
     Dosage: ONE AND A HALF 4 MG TABLETS FOR 7 DAYS
  11. DEXAMETHASONE [Concomitant]
     Active Substance: DEXAMETHASONE
     Dosage: ONE 4 MG TABLET FOR 7 DAYS
  12. DEXAMETHASONE [Concomitant]
     Active Substance: DEXAMETHASONE
     Dosage: HALF 4 MG TABLET FOR 7 DAYS

REACTIONS (5)
  - Epilepsy [Unknown]
  - Neoplasm progression [Unknown]
  - Brain fog [Unknown]
  - Dehydration [Unknown]
  - Malaise [Unknown]
